FAERS Safety Report 11219389 (Version 2)
Quarter: 2016Q1

REPORT INFORMATION
  Report Type: Report from Study
  Country: US (occurrence: US)
  Receive Date: 20150625
  Receipt Date: 20160115
  Transmission Date: 20160525
  Serious: Yes (Hospitalization)
  Sender: FDA-Public Use
  Company Number: US-ABBVIE-15P-163-1412119-00

PATIENT
  Age: 60 Year
  Sex: Female

DRUGS (1)
  1. HUMIRA [Suspect]
     Active Substance: ADALIMUMAB
     Indication: RHEUMATOID ARTHRITIS
     Route: 058
     Dates: start: 20150504, end: 20151123

REACTIONS (5)
  - Sickle cell anaemia with crisis [Recovered/Resolved]
  - Pulmonary embolism [Recovering/Resolving]
  - Sickle cell anaemia with crisis [Recovering/Resolving]
  - Bacterial infection [Recovering/Resolving]
  - Shoulder operation [Recovering/Resolving]

NARRATIVE: CASE EVENT DATE: 20150617
